FAERS Safety Report 4390744-2 (Version None)
Quarter: 2004Q3

REPORT INFORMATION
  Report Type: 
  Country: None (occurrence: None)
  Receive Date: 20040706
  Receipt Date: 20040706
  Transmission Date: 20050211
  Serious: No
  Sender: FDA-Public Use
  Company Number: None

PATIENT
  Age: 59 Year
  Sex: Female
  Weight: 108.4097 kg

DRUGS (9)
  1. ACTOS [Suspect]
     Indication: DIABETES MELLITUS NON-INSULIN-DEPENDENT
     Dosage: 45 MG PO QD
     Route: 048
     Dates: start: 20030101, end: 20030501
  2. AVANDIA [Suspect]
     Indication: DIABETES MELLITUS NON-INSULIN-DEPENDENT
     Dosage: 8 MG PO QD
     Route: 048
     Dates: start: 20030501, end: 20040501
  3. LANTUS [Concomitant]
  4. MONOPRIL [Concomitant]
  5. ADALAT CC [Concomitant]
  6. LASIX [Concomitant]
  7. ZOCOR [Concomitant]
  8. LOPID [Concomitant]
  9. GLUCOPHAGE [Concomitant]

REACTIONS (7)
  - FATIGUE [None]
  - PALPITATIONS [None]
  - PNEUMONIA [None]
  - SLEEP APNOEA SYNDROME [None]
  - TACHYCARDIA [None]
  - WEIGHT DECREASED [None]
  - WEIGHT INCREASED [None]
